FAERS Safety Report 5385486-0 (Version None)
Quarter: 2007Q3

REPORT INFORMATION
  Report Type: 
  Country: None (occurrence: None)
  Receive Date: 20070712
  Receipt Date: 20070629
  Transmission Date: 20080115
  Serious: Yes (Hospitalization)
  Sender: FDA-Public Use
  Company Number: JP-ASTRAZENECA-2004AP05895

PATIENT
  Age: 539 Month
  Sex: Female

DRUGS (6)
  1. NOLVADEX [Suspect]
     Indication: BREAST CANCER
     Route: 048
     Dates: start: 20010706, end: 20040922
  2. ZOLADEX [Suspect]
     Indication: BREAST CANCER
     Route: 058
     Dates: start: 20010709, end: 20030730
  3. FURTULON [Concomitant]
     Indication: BREAST CANCER
     Route: 048
     Dates: start: 20010627, end: 20030730
  4. EPIRUBICIN HCL [Concomitant]
     Indication: BREAST CANCER
     Dosage: SIX COURSES
     Route: 041
     Dates: start: 20010709, end: 20011203
  5. FLUOROURACIL [Concomitant]
     Indication: BREAST CANCER
     Dosage: SIX COURSES
     Route: 041
     Dates: start: 20010709, end: 20011203
  6. CYCLOPHOSPHAMIDE [Concomitant]
     Indication: BREAST CANCER
     Dosage: SIX COURSES
     Route: 048
     Dates: start: 20010709, end: 20011216

REACTIONS (1)
  - ENDOMETRIAL CANCER [None]
